FAERS Safety Report 9029199 (Version 1)
Quarter: 2013Q1

REPORT INFORMATION
  Report Type: Spontaneous
  Country: BR (occurrence: BR)
  Receive Date: 20130125
  Receipt Date: 20130125
  Transmission Date: 20140127
  Serious: Yes (Other)
  Sender: FDA-Public Use
  Company Number: BR-JNJFOC-20130110977

PATIENT
  Age: 56 Year
  Sex: Female
  Weight: 75 kg

DRUGS (10)
  1. DUROGESIC D-TRANS [Suspect]
     Indication: CENTRAL PAIN SYNDROME
     Route: 062
     Dates: start: 20130104
  2. DUROGESIC D-TRANS [Suspect]
     Indication: CENTRAL PAIN SYNDROME
     Route: 062
     Dates: start: 20121222, end: 20130104
  3. LYRICA [Concomitant]
     Indication: CENTRAL PAIN SYNDROME
     Route: 065
  4. AMATO(TOPIRAMATE) [Concomitant]
     Indication: BIPOLAR DISORDER
     Route: 065
  5. CYMBALTA [Concomitant]
     Indication: DEPRESSION
     Route: 065
  6. METFORMIN [Concomitant]
     Indication: DIABETES MELLITUS
     Route: 065
  7. AAS [Concomitant]
     Indication: ANTICOAGULANT THERAPY
     Route: 065
  8. IMIPRAMINE [Concomitant]
     Indication: DEPRESSION
     Route: 065
  9. ESTAZOLAM [Concomitant]
     Indication: BIPOLAR DISORDER
     Route: 065
  10. GEODON [Concomitant]
     Indication: DEPRESSION
     Route: 065

REACTIONS (3)
  - Oral candidiasis [Recovered/Resolved]
  - Apathy [Recovered/Resolved]
  - Fluid retention [Recovered/Resolved]
